FAERS Safety Report 6558128-6 (Version None)
Quarter: 2010Q1

REPORT INFORMATION
  Report Type: 
  Country: None (occurrence: None)
  Receive Date: 20100129
  Receipt Date: 20100126
  Transmission Date: 20100710
  Serious: Yes (Other)
  Sender: FDA-Public Use
  Company Number: B0623502A

PATIENT
  Age: 5 Year
  Sex: Female

DRUGS (2)
  1. SERETIDE [Suspect]
     Indication: ASTHMA
     Route: 065
     Dates: start: 20091001
  2. AEROLIN [Suspect]
     Indication: ASTHMA
     Route: 065

REACTIONS (1)
  - PSYCHOTIC DISORDER [None]
